FAERS Safety Report 6742154-8 (Version None)
Quarter: 2010Q2

REPORT INFORMATION
  Report Type: 
  Country: None (occurrence: None)
  Receive Date: 20100526
  Receipt Date: 20100517
  Transmission Date: 20101027
  Serious: Yes (Other)
  Sender: FDA-Public Use
  Company Number: FI-JNJCH-2010012535

PATIENT
  Sex: Male
  Weight: 92 kg

DRUGS (6)
  1. NICORETTE [Suspect]
     Indication: SMOKING CESSATION THERAPY
     Dosage: TEXT:UNKNOWN
     Route: 062
     Dates: start: 20060101, end: 20070101
  2. NICORETTE [Suspect]
     Indication: SMOKING CESSATION THERAPY
     Dosage: TEXT:2MG AND 4MG UNSPECIFIED
     Route: 048
     Dates: start: 20060101, end: 20070101
  3. CHAMPIX [Suspect]
     Indication: NICOTINE DEPENDENCE
     Dosage: TEXT:1MG, 2X/ DAY
     Route: 048
     Dates: start: 20070709, end: 20071101
  4. CHAMPIX [Suspect]
     Dosage: TEXT:0.5MG, 1X/DAY
     Route: 048
     Dates: start: 20070702, end: 20070704
  5. CHAMPIX [Suspect]
     Dosage: TEXT:0.5MG, 2X/DAY
     Route: 048
     Dates: start: 20070705, end: 20070708
  6. HAVRIX [Concomitant]
     Indication: HEPATITIS A
     Dosage: TEXT:UNKNOWN
     Route: 030
     Dates: start: 20070629, end: 20070629

REACTIONS (3)
  - DRUG DEPENDENCE [None]
  - OVERDOSE [None]
  - WITHDRAWAL SYNDROME [None]
